FAERS Safety Report 16776644 (Version 1)
Quarter: 2019Q3

REPORT INFORMATION
  Report Type: Spontaneous
  Country: CN (occurrence: CN)
  Receive Date: 20190905
  Receipt Date: 20190905
  Transmission Date: 20191005
  Serious: Yes (Hospitalization)
  Sender: FDA-Public Use
  Company Number: CN-SA-2019SA242431

PATIENT
  Age: 73 Year
  Sex: Male
  Weight: 72 kg

DRUGS (3)
  1. GIMERACIL;OTERACIL;TEGAFUR [Suspect]
     Active Substance: GIMERACIL\OTERACIL\TEGAFUR
     Dosage: NIGHT
     Route: 048
     Dates: start: 20190722, end: 20190804
  2. GIMERACIL;OTERACIL;TEGAFUR [Suspect]
     Active Substance: GIMERACIL\OTERACIL\TEGAFUR
     Indication: NASOPHARYNGEAL CANCER
     Dosage: MORNING
     Route: 048
     Dates: start: 20190722, end: 20190804
  3. ELOXATIN [Suspect]
     Active Substance: OXALIPLATIN
     Indication: NASOPHARYNGEAL CANCER
     Dosage: 220 MG, QD
     Route: 041
     Dates: start: 20190722, end: 20190722

REACTIONS (1)
  - Bone marrow failure [Recovered/Resolved]

NARRATIVE: CASE EVENT DATE: 20190819
